FAERS Safety Report 15286371 (Version 1)
Quarter: 2018Q3

REPORT INFORMATION
  Report Type: Spontaneous
  Country: US (occurrence: US)
  Receive Date: 20180816
  Receipt Date: 20180816
  Transmission Date: 20181010
  Serious: No
  Sender: FDA-Public Use
  Company Number: US-NEXGEN PHARMA, INC.-2053845

PATIENT
  Age: 34 Year
  Sex: Female

DRUGS (1)
  1. BUTALBITAL AND ACETAMINOPHEN TABLET [Suspect]
     Active Substance: ACETAMINOPHEN\BUTALBITAL
     Indication: HEADACHE
     Route: 048

REACTIONS (1)
  - Drug ineffective [Unknown]
